FAERS Safety Report 14789067 (Version 1)
Quarter: 2018Q2

REPORT INFORMATION
  Report Type: Spontaneous
  Country: US (occurrence: US)
  Receive Date: 20180423
  Receipt Date: 20180423
  Transmission Date: 20180711
  Serious: No
  Sender: FDA-Public Use
  Company Number: US-AMGEN-USASP2018054265

PATIENT
  Age: 54 Year
  Sex: Female

DRUGS (1)
  1. ENBREL [Suspect]
     Active Substance: ETANERCEPT
     Indication: RHEUMATOID ARTHRITIS
     Dosage: 50 MG, QWK
     Route: 065
     Dates: start: 20180110

REACTIONS (6)
  - Injection site haemorrhage [Unknown]
  - Fatigue [Unknown]
  - Disturbance in attention [Unknown]
  - Wrong technique in product usage process [Unknown]
  - Injection site injury [Unknown]
  - Injection site bruising [Unknown]

NARRATIVE: CASE EVENT DATE: 2018
